FAERS Safety Report 6219939-X (Version None)
Quarter: 2009Q2

REPORT INFORMATION
  Report Type: 
  Country: None (occurrence: None)
  Receive Date: 20090605
  Receipt Date: 20090521
  Transmission Date: 20091009
  Serious: Yes (Hospitalization)
  Sender: FDA-Public Use
  Company Number: 2009001069

PATIENT
  Age: 75 Year
  Sex: Male
  Weight: 70.7 kg

DRUGS (10)
  1. ERLOTINIB (ERLOTINIB) (TABLET) (ERLOTINIB) [Suspect]
     Indication: NON-SMALL CELL LUNG CANCER
     Dosage: (150 MG, QD), ORAL
     Route: 048
     Dates: start: 20090226, end: 20090510
  2. FAMOTIDINE [Concomitant]
  3. PLETAL [Concomitant]
  4. EURODIN (ESTAZOLAM) [Concomitant]
  5. ASPIRIN [Concomitant]
  6. ADALAT [Concomitant]
  7. LASIX [Concomitant]
  8. LOPERAMIDE HCL [Concomitant]
  9. FLUMETHOLON (FLUOROMETHOLONE) [Concomitant]
  10. ALLEGRA [Concomitant]

REACTIONS (6)
  - BALANCE DISORDER [None]
  - CARDIAC FAILURE CONGESTIVE [None]
  - DRUG ERUPTION [None]
  - LEFT VENTRICULAR FAILURE [None]
  - PERICARDIAL EFFUSION [None]
  - PLEURAL EFFUSION [None]
